FAERS Safety Report 5357444-3 (Version None)
Quarter: 2007Q2

REPORT INFORMATION
  Report Type: 
  Country: None (occurrence: None)
  Receive Date: 20070530
  Receipt Date: 20061106
  Transmission Date: 20071010
  Serious: Yes (Hospitalization)
  Sender: FDA-Public Use
  Company Number: US200607002668

PATIENT
  Sex: Male
  Weight: 97.5 kg

DRUGS (1)
  1. ZYPREXA [Suspect]
     Indication: BIPOLAR I DISORDER

REACTIONS (4)
  - DIABETES MELLITUS [None]
  - EMOTIONAL DISTRESS [None]
  - FEELING ABNORMAL [None]
  - PANCREATITIS [None]
